APPROVED DRUG PRODUCT: TERIL
Active Ingredient: CARBAMAZEPINE
Strength: 200MG
Dosage Form/Route: TABLET;ORAL
Application: A076525 | Product #001
Applicant: TARO PHARMACEUTICAL INDUSTRIES LTD
Approved: Sep 26, 2003 | RLD: No | RS: No | Type: DISCN